FAERS Safety Report 6402652-3 (Version None)
Quarter: 2009Q4

REPORT INFORMATION
  Report Type: 
  Country: None (occurrence: None)
  Receive Date: 20091009
  Receipt Date: 20090930
  Transmission Date: 20100525
  Serious: Yes (Hospitalization)
  Sender: FDA-Public Use
  Company Number: ADR34342009

PATIENT
  Age: 63 Year
  Sex: Female

DRUGS (13)
  1. CIPROFLOXACIN HYDROCHLORIDE [Suspect]
     Dates: start: 20080607, end: 20080617
  2. AMILORIDE HYDROCHLORIDE [Concomitant]
  3. BUMETANIDE [Concomitant]
  4. CARBOCISTEINE [Concomitant]
  5. LEVOTHYROXINE SODIUM [Concomitant]
  6. MORPHINE [Concomitant]
  7. ALBUTEROL [Concomitant]
  8. SERETIDE (FLUTICASONE, SALMETEROL) [Concomitant]
  9. SIMVASTATIN [Concomitant]
  10. TIOTROPIUM [Concomitant]
  11. TRAMADOL HCL [Concomitant]
  12. VERAPAMIL [Concomitant]
  13. WARFARIN SODIUM [Concomitant]

REACTIONS (4)
  - LIP SWELLING [None]
  - MOUTH ULCERATION [None]
  - NASAL ULCER [None]
  - RASH [None]
